FAERS Safety Report 21896756 (Version 2)
Quarter: 2023Q1

REPORT INFORMATION
  Report Type: Spontaneous
  Country: US (occurrence: US)
  Receive Date: 20230123
  Receipt Date: 20230126
  Transmission Date: 20230418
  Serious: No
  Sender: FDA-Public Use
  Company Number: US-ALK-ABELLO A/S-2022AA004497

PATIENT

DRUGS (6)
  1. WHEAT GRAIN [Suspect]
     Active Substance: WHEAT
     Indication: Diagnostic procedure
     Dosage: UNK
     Dates: start: 20221006
  2. ALLERGENIC EXTRACTS [Suspect]
     Active Substance: ALLERGENIC EXTRACTS
     Indication: Diagnostic procedure
     Dosage: UNK
     Dates: start: 20221006
  3. ALLERGENIC EXTRACT- PEANUT ARACHIS HYPOGAEA [Concomitant]
     Active Substance: ALLERGENIC EXTRACT- PEANUT ARACHIS HYPOGAEA
     Indication: Diagnostic procedure
     Dosage: UNK
     Dates: start: 20221006
  4. DAE BULK 619 [Concomitant]
     Indication: Diagnostic procedure
     Dosage: UNK
     Dates: start: 20221006
  5. HISTAMINE PHOSPHATE [Concomitant]
     Active Substance: HISTAMINE PHOSPHATE
     Indication: Diagnostic procedure
     Dosage: UNK
     Dates: start: 20221006
  6. ALLERGENIC EXTRACTS [Concomitant]
     Active Substance: ALLERGENIC EXTRACTS
     Indication: Diagnostic procedure
     Dosage: UNK
     Dates: start: 20221006

REACTIONS (1)
  - False negative investigation result [Unknown]

NARRATIVE: CASE EVENT DATE: 20221006
